FAERS Safety Report 8625592-8 (Version None)
Quarter: 2012Q3

REPORT INFORMATION
  Report Type: 
  Country: None (occurrence: None)
  Receive Date: 20120827
  Receipt Date: 20120820
  Transmission Date: 20120928
  Serious: Yes (Hospitalization)
  Sender: FDA-Public Use
  Company Number: DE-JNJFOC-20091202947

PATIENT
  Age: 76 Year
  Sex: Male
  Weight: 87 kg

DRUGS (9)
  1. REMICADE [Suspect]
     Route: 042
     Dates: start: 20090825
  2. REMICADE [Suspect]
     Indication: PSORIASIS
     Route: 042
     Dates: start: 20090714
  3. ATARAX [Concomitant]
     Indication: PSORIASIS
     Dates: start: 20050301
  4. FENTANYL [Interacting]
     Indication: PRODUCT USED FOR UNKNOWN INDICATION
  5. METRONIDAZOLE [Interacting]
     Indication: PRODUCT USED FOR UNKNOWN INDICATION
  6. REMICADE [Suspect]
     Route: 042
     Dates: start: 20090729
  7. TILIDIN [Concomitant]
     Indication: BACK PAIN
     Dates: start: 20090604
  8. REMICADE [Suspect]
     Route: 042
     Dates: start: 20091020
  9. PSORCUTAN BETA [Concomitant]
     Indication: PSORIASIS
     Dates: start: 20050101

REACTIONS (5)
  - DRUG INTERACTION [None]
  - MYOCARDIAL INFARCTION [None]
  - DEPRESSION [None]
  - CHEST PAIN [None]
  - CLOSTRIDIUM DIFFICILE COLITIS [None]
